FAERS Safety Report 11448491 (Version 2)
Quarter: 2016Q1

REPORT INFORMATION
  Report Type: Spontaneous
  Country: US (occurrence: US)
  Receive Date: 20150902
  Receipt Date: 20160215
  Transmission Date: 20160525
  Serious: Yes (Death, Hospitalization, Disabling, Other)
  Sender: FDA-Public Use
  Company Number: US-009507513-1509USA001241

PATIENT
  Sex: Male
  Weight: 61.22 kg

DRUGS (1)
  1. JANUVIA [Suspect]
     Active Substance: SITAGLIPTIN PHOSPHATE
     Indication: TYPE 2 DIABETES MELLITUS
     Dosage: 50 MG, QD
     Route: 048
     Dates: start: 20120712, end: 20130816

REACTIONS (27)
  - Sinus tachycardia [Unknown]
  - Drop attacks [Unknown]
  - Acute kidney injury [Recovered/Resolved]
  - Hypertension [Not Recovered/Not Resolved]
  - Pancreatitis chronic [Not Recovered/Not Resolved]
  - Atelectasis [Unknown]
  - Adverse drug reaction [Unknown]
  - Electrocardiogram QT prolonged [Unknown]
  - Metastases to lung [Unknown]
  - C-reactive protein increased [Not Recovered/Not Resolved]
  - Hepatic cirrhosis [Not Recovered/Not Resolved]
  - Left atrial dilatation [Unknown]
  - Nausea [Unknown]
  - Metastases to peritoneum [Unknown]
  - Myocardial infarction [Unknown]
  - Chronic kidney disease [Not Recovered/Not Resolved]
  - Hyperglycaemia [Unknown]
  - Diabetes mellitus inadequate control [Not Recovered/Not Resolved]
  - Presyncope [Recovered/Resolved]
  - Chest pain [Unknown]
  - Electrocardiogram ST-T change [Unknown]
  - Lymphadenopathy [Unknown]
  - Metastases to liver [Unknown]
  - Death [Fatal]
  - Pain in extremity [Recovered/Resolved]
  - Pancreatic carcinoma metastatic [Unknown]
  - Hypertension [Unknown]

NARRATIVE: CASE EVENT DATE: 20120823
